FAERS Safety Report 4564051-9 (Version None)
Quarter: 2005Q1

REPORT INFORMATION
  Report Type: 
  Country: None (occurrence: None)
  Receive Date: 20050128
  Receipt Date: 20050114
  Transmission Date: 20050727
  Serious: Yes (Other)
  Sender: FDA-Public Use
  Company Number: US-MERCK-0501USA02760

PATIENT
  Age: 18 Year
  Sex: Male

DRUGS (1)
  1. ELSPAR [Suspect]
     Indication: ACUTE LYMPHOCYTIC LEUKAEMIA
     Route: 041
     Dates: start: 19770209, end: 19770218

REACTIONS (10)
  - ABDOMINAL DISTENSION [None]
  - ANOREXIA [None]
  - DIABETES MELLITUS [None]
  - HEPATOMEGALY [None]
  - LUNG INFILTRATION [None]
  - NAUSEA [None]
  - PANCREATITIS [None]
  - POST PROCEDURAL COMPLICATION [None]
  - PSEUDOCYST [None]
  - VOMITING [None]
